FAERS Safety Report 11880295 (Version 1)
Quarter: 2015Q4

REPORT INFORMATION
  Report Type: Spontaneous
  Country: IT (occurrence: IT)
  Receive Date: 20151230
  Receipt Date: 20151230
  Transmission Date: 20160305
  Serious: Yes (Other)
  Sender: FDA-Public Use
  Company Number: IT-FRI-1000081944

PATIENT
  Age: 73 Year
  Sex: Female
  Weight: 68 kg

DRUGS (5)
  1. ZANIPRIL [Suspect]
     Active Substance: ENALAPRIL MALEATE\LERCANIDIPINE HYDROCHLORIDE
     Indication: HYPERTENSION
     Dosage: 1 DOSAGE FORMS
     Route: 048
     Dates: start: 20141119
  2. XANAX [Concomitant]
     Active Substance: ALPRAZOLAM
     Route: 048
  3. CARDURA [Suspect]
     Active Substance: DOXAZOSIN MESYLATE
     Indication: HYPERTENSION
     Dosage: 4 MG
     Route: 048
     Dates: start: 20141119
  4. NEBIVOLOL. [Suspect]
     Active Substance: NEBIVOLOL
     Indication: HYPERTENSION
     Dosage: 10 MG
     Route: 048
     Dates: start: 20141119
  5. LUCEN [Concomitant]
     Active Substance: ESOMEPRAZOLE
     Route: 048

REACTIONS (1)
  - Hypertensive crisis [Recovered/Resolved]

NARRATIVE: CASE EVENT DATE: 20151204
